FAERS Safety Report 7936605-0 (Version None)
Quarter: 2011Q4

REPORT INFORMATION
  Report Type: 
  Country: None (occurrence: None)
  Receive Date: 20111123
  Receipt Date: 20111115
  Transmission Date: 20120403
  Serious: Yes (Hospitalization, Other)
  Sender: FDA-Public Use
  Company Number: US-MYLANLABS-2011S1023693

PATIENT
  Age: 86 Year
  Sex: Female
  Weight: 63.96 kg

DRUGS (13)
  1. MECLIZINE [Concomitant]
     Indication: DIZZINESS
     Route: 048
     Dates: start: 20060420
  2. AFLIBERCEPT [Suspect]
     Dosage: MASKED (Q4 WEEKS/Q12 WEEKS/PRN) ROUTE - INTRAVITREAL
     Dates: start: 20081223, end: 20091218
  3. AFLIBERCEPT [Suspect]
     Dosage: MASKED (Q4 WEEKS) ROUTE - INTRAVITREAL
     Dates: start: 20071031, end: 20081001
  4. ALENDRONATE SODIUM [Suspect]
     Indication: COMPRESSION FRACTURE
     Route: 048
     Dates: start: 20110401, end: 20110501
  5. SULINDAC [Concomitant]
     Indication: ARTHRALGIA
     Route: 048
     Dates: start: 20070801
  6. CLARITIN /00413701/ [Concomitant]
     Indication: SEASONAL ALLERGY
     Route: 048
     Dates: start: 20060703
  7. DOXAZOSIN MESYLATE [Concomitant]
     Indication: HYPERTENSION
     Route: 048
     Dates: start: 20100101
  8. DILTIAZEM HCL [Concomitant]
     Indication: HYPERTENSION
     Route: 048
     Dates: start: 20050101
  9. ACTOS [Concomitant]
     Indication: DIABETES MELLITUS
     Route: 048
     Dates: start: 20100101
  10. AFLIBERCEPT [Suspect]
     Indication: AGE-RELATED MACULAR DEGENERATION
     Dosage: ROUTE - INTRAVITREAL
     Dates: start: 20091218, end: 20110609
  11. METOPROLOL TARTRATE [Concomitant]
     Indication: HYPERTENSION
     Route: 048
     Dates: start: 20100111
  12. IBUPROFEN [Concomitant]
     Indication: PAIN IN EXTREMITY
     Route: 048
     Dates: start: 20100310
  13. TYLENOL-500 [Concomitant]
     Indication: PAIN
     Route: 048
     Dates: start: 20020101

REACTIONS (3)
  - VOMITING [None]
  - CONVULSION [None]
  - NAUSEA [None]
